FAERS Safety Report 8367726-9 (Version None)
Quarter: 2012Q2

REPORT INFORMATION
  Report Type: 
  Country: None (occurrence: None)
  Receive Date: 20120517
  Receipt Date: 20111001
  Transmission Date: 20120825
  Serious: Yes (Other)
  Sender: FDA-Public Use
  Company Number: CA-GLAXOSMITHKLINE-A0946666A

PATIENT
  Sex: Male
  Weight: 86.4 kg

DRUGS (16)
  1. ATROVENT [Concomitant]
     Route: 065
  2. LOXAPINE [Concomitant]
  3. VENTOLIN [Concomitant]
     Dosage: 1PUFF TWICE PER DAY
  4. MULTI-VITAMIN [Concomitant]
  5. UNSPECIFIED MEDICATION [Concomitant]
  6. COGENTIN [Concomitant]
  7. ZOPICLONE [Concomitant]
  8. TRIHEXYPHENIDYL HCL [Concomitant]
     Dosage: 2MG PER DAY
     Route: 065
  9. METFORMIN HCL [Concomitant]
     Dosage: 125MG TWICE PER DAY
  10. BISOPROLOL FUMARATE [Concomitant]
     Dosage: 2.5MG PER DAY
  11. RAMIPRIL [Concomitant]
     Dosage: 10MG PER DAY
  12. ADVAIR DISKUS 100/50 [Suspect]
     Indication: ASTHMA
     Dosage: 1PUFF TWICE PER DAY
     Route: 055
     Dates: start: 20060101
  13. LITHIUM CARBONATE [Concomitant]
     Dosage: 900MG AT NIGHT
     Route: 065
  14. DOCUSATE [Concomitant]
     Dosage: 100MG TWICE PER DAY
     Route: 065
  15. PANTOPRAZOLE [Concomitant]
     Route: 065
  16. CALCIUM [Concomitant]

REACTIONS (10)
  - PNEUMONIA [None]
  - MALAISE [None]
  - COUGH [None]
  - WHEEZING [None]
  - DRY MOUTH [None]
  - TONGUE DISCOLOURATION [None]
  - UPPER RESPIRATORY TRACT INFECTION [None]
  - ORAL DISORDER [None]
  - VOMITING [None]
  - GLOSSODYNIA [None]
